FAERS Safety Report 9493773 (Version 1)
Quarter: 2013Q3

REPORT INFORMATION
  Report Type: Spontaneous
  Country: TR (occurrence: TR)
  Receive Date: 20130902
  Receipt Date: 20130902
  Transmission Date: 20140515
  Serious: Yes (Other)
  Sender: FDA-Public Use
  Company Number: TR-MYLANLABS-2013S1018783

PATIENT
  Age: 7 Year
  Sex: Female

DRUGS (4)
  1. TACROLIMUS [Suspect]
     Indication: IMMUNOSUPPRESSANT DRUG THERAPY
     Route: 065
  2. MYCOPHENOLATE MOFETIL [Suspect]
     Indication: IMMUNOSUPPRESSANT DRUG THERAPY
     Route: 065
  3. RIFAMPICIN [Interacting]
     Indication: BRUCELLOSIS
     Route: 065
  4. COTRIMOXAZOLE [Concomitant]
     Indication: BRUCELLOSIS
     Route: 065

REACTIONS (3)
  - Brucellosis [Recovered/Resolved]
  - Immunosuppressant drug level decreased [Recovering/Resolving]
  - Drug interaction [Recovering/Resolving]
